FAERS Safety Report 19717480 (Version 1)
Quarter: 2021Q3

REPORT INFORMATION
  Report Type: Spontaneous
  Country: US (occurrence: US)
  Receive Date: 20210818
  Receipt Date: 20210818
  Transmission Date: 20211014
  Serious: Yes (Death)
  Sender: FDA-Public Use
  Company Number: US-SPECGX-T202101667

PATIENT
  Sex: Male

DRUGS (2)
  1. MORPHINE [Suspect]
     Active Substance: MORPHINE
     Indication: ARTHRALGIA
     Dosage: UNK
     Route: 065
     Dates: start: 201112, end: 20180108
  2. TRAMADOL. [Suspect]
     Active Substance: TRAMADOL
     Indication: ARTHRALGIA
     Dosage: UNK
     Route: 065
     Dates: start: 201112, end: 20180108

REACTIONS (2)
  - Respiratory distress [Fatal]
  - Overdose [Fatal]
